FAERS Safety Report 6521986-5 (Version None)
Quarter: 2009Q4

REPORT INFORMATION
  Report Type: 
  Country: None (occurrence: None)
  Receive Date: 20091230
  Receipt Date: 20091223
  Transmission Date: 20100525
  Serious: Yes (Hospitalization)
  Sender: FDA-Public Use
  Company Number: GB-TEVA-219100ISR

PATIENT
  Age: 21 Year
  Sex: Female

DRUGS (1)
  1. MINOCYCLINE [Suspect]
     Indication: ACNE

REACTIONS (1)
  - ORGANISING PNEUMONIA [None]
